FAERS Safety Report 7748133-6 (Version None)
Quarter: 2011Q3

REPORT INFORMATION
  Report Type: 
  Country: None (occurrence: None)
  Receive Date: 20110913
  Receipt Date: 20110815
  Transmission Date: 20111222
  Serious: No
  Sender: FDA-Public Use
  Company Number: US-BAYER-2011-075462

PATIENT
  Age: 29 Year
  Sex: Female
  Weight: 63 kg

DRUGS (1)
  1. ALEVE-D SINUS + COLD [Suspect]
     Indication: NASOPHARYNGITIS
     Dosage: 440 MG, BID
     Route: 048
     Dates: start: 20110813, end: 20110814

REACTIONS (3)
  - NASOPHARYNGITIS [None]
  - INSOMNIA [None]
  - ABDOMINAL DISCOMFORT [None]
